FAERS Safety Report 15190260 (Version 4)
Quarter: 2018Q3

REPORT INFORMATION
  Report Type: Spontaneous
  Country: JP (occurrence: JP)
  Receive Date: 20180724
  Receipt Date: 20180914
  Transmission Date: 20181010
  Serious: Yes (Hospitalization)
  Sender: FDA-Public Use
  Company Number: JP-ABBVIE-18K-087-2428765-00

PATIENT
  Age: 70 Year
  Sex: Male
  Weight: 65 kg

DRUGS (12)
  1. LAFUTIDINE [Concomitant]
     Active Substance: LAFUTIDINE
     Indication: GASTRITIS
  2. MAVIRET [Suspect]
     Active Substance: GLECAPREVIR\PIBRENTASVIR
     Route: 048
     Dates: start: 20180725, end: 20180804
  3. BEPOTASTINE BESILATE [Concomitant]
     Active Substance: BEPOTASTINE BESILATE
     Indication: PRURITUS
     Route: 048
  4. NAPROXEN. [Concomitant]
     Active Substance: NAPROXEN
     Indication: PAIN IN EXTREMITY
  5. NIFEDIPINE. [Concomitant]
     Active Substance: NIFEDIPINE
     Indication: HYPERTENSION
     Route: 048
  6. MAVIRET [Suspect]
     Active Substance: GLECAPREVIR\PIBRENTASVIR
     Indication: CHRONIC HEPATITIS C
     Route: 048
     Dates: start: 20180627, end: 20180724
  7. MAVIRET [Suspect]
     Active Substance: GLECAPREVIR\PIBRENTASVIR
     Route: 048
     Dates: start: 20180805, end: 20180807
  8. NAPROXEN. [Concomitant]
     Active Substance: NAPROXEN
     Indication: BACK PAIN
  9. NALFURAFINE HYDROCHLORIDE [Concomitant]
     Active Substance: NALFURAFINE HYDROCHLORIDE
     Indication: PRURITUS
     Route: 048
     Dates: start: 20180704, end: 20180710
  10. VONOPRAZAN FUMARATE [Concomitant]
     Active Substance: VONOPRAZAN FUMURATE
     Indication: GASTROOESOPHAGEAL REFLUX DISEASE
     Route: 048
     Dates: start: 20180704, end: 20180711
  11. LAFUTIDINE [Concomitant]
     Active Substance: LAFUTIDINE
     Indication: DIALYSIS
     Route: 048
  12. NAPROXEN. [Concomitant]
     Active Substance: NAPROXEN
     Indication: DIALYSIS
     Route: 048

REACTIONS (6)
  - Dizziness [Recovering/Resolving]
  - Blood bilirubin increased [Recovered/Resolved]
  - Polyneuropathy [Recovering/Resolving]
  - Abdominal discomfort [Not Recovered/Not Resolved]
  - Pruritus [Recovering/Resolving]
  - Gait disturbance [Recovering/Resolving]

NARRATIVE: CASE EVENT DATE: 20180627
